FAERS Safety Report 5490904-3 (Version None)
Quarter: 2007Q4

REPORT INFORMATION
  Report Type: 
  Country: None (occurrence: None)
  Receive Date: 20071019
  Receipt Date: 20071009
  Transmission Date: 20080405
  Serious: Yes (Hospitalization)
  Sender: FDA-Public Use
  Company Number: JP-AMGEN-US248450

PATIENT
  Sex: Female
  Weight: 60 kg

DRUGS (15)
  1. ENBREL [Suspect]
     Indication: RHEUMATOID ARTHRITIS
     Route: 058
     Dates: start: 20070411, end: 20070530
  2. RHEUMATREX [Suspect]
     Indication: RHEUMATOID ARTHRITIS
     Route: 065
     Dates: start: 20040401
  3. RHEUMATREX [Suspect]
     Dates: start: 20040801
  4. RHEUMATREX [Suspect]
     Dates: start: 20040901
  5. RHEUMATREX [Suspect]
     Dates: start: 20050701, end: 20070602
  6. FOLIAMIN [Concomitant]
     Indication: FOLATE DEFICIENCY
     Route: 048
     Dates: start: 20040401, end: 20070509
  7. PREDNISOLONE [Concomitant]
     Indication: RHEUMATOID ARTHRITIS
     Route: 048
     Dates: start: 20060404
  8. PREDNISOLONE [Concomitant]
     Dosage: 5 MG EVERY
     Dates: start: 20040301
  9. PREDNISOLONE [Concomitant]
     Dosage: 10 MG EVERY
     Dates: start: 20050501
  10. PREDNISOLONE [Concomitant]
     Dosage: 9 MG EVERY
     Dates: start: 20050701
  11. ZOLPIDEM TARTRATE [Concomitant]
     Indication: INSOMNIA
     Route: 048
     Dates: start: 20070509
  12. SULFASALAZINE [Concomitant]
     Dosage: 1 TABLET EVERY
     Route: 065
     Dates: start: 20040201
  13. BONALON [Concomitant]
     Indication: OSTEOPOROSIS
     Route: 048
     Dates: start: 20060207
  14. PURSENNID [Concomitant]
     Indication: CONSTIPATION
     Route: 048
     Dates: start: 20070509
  15. RABEPRAZOLE SODIUM [Concomitant]
     Indication: REFLUX OESOPHAGITIS
     Route: 048
     Dates: start: 20041211

REACTIONS (1)
  - PLEURAL EFFUSION [None]
